FAERS Safety Report 25834491 (Version 1)
Quarter: 2025Q3

REPORT INFORMATION
  Report Type: Spontaneous
  Country: CN (occurrence: CN)
  Receive Date: 20250923
  Receipt Date: 20250923
  Transmission Date: 20251020
  Serious: Yes (Life-Threatening, Hospitalization)
  Sender: ROCHE
  Company Number: CN-ROCHE-10000388377

PATIENT
  Age: 13 Year
  Sex: Male

DRUGS (10)
  1. OBINUTUZUMAB [Suspect]
     Active Substance: OBINUTUZUMAB
     Indication: Nephrotic syndrome
     Route: 042
     Dates: start: 20250708, end: 20250708
  2. AZITHROMYCIN ANHYDROUS [Concomitant]
     Active Substance: AZITHROMYCIN ANHYDROUS
     Indication: Infection prophylaxis
     Route: 042
     Dates: start: 20250902, end: 20250903
  3. AZITHROMYCIN ANHYDROUS [Concomitant]
     Active Substance: AZITHROMYCIN ANHYDROUS
     Route: 042
     Dates: start: 20250901, end: 20250901
  4. IBUPROFEN [Concomitant]
     Active Substance: IBUPROFEN
     Indication: Pyrexia
     Route: 048
     Dates: start: 20250902, end: 20250902
  5. IBUPROFEN [Concomitant]
     Active Substance: IBUPROFEN
     Route: 048
     Dates: start: 20250903, end: 20250903
  6. IBUPROFEN [Concomitant]
     Active Substance: IBUPROFEN
     Route: 048
     Dates: start: 20250828, end: 20250901
  7. BENZYLPENICILLIN SODIUM INJECTION [Concomitant]
     Indication: Skin test
     Route: 023
     Dates: start: 20250903, end: 20250903
  8. Leucogen tablet [Concomitant]
     Indication: White blood cell count increased
     Route: 048
     Dates: start: 20250902, end: 20250909
  9. PIPERACILLIN SODIUM AND TAZOBACTAM SODIUM INJECTION [Concomitant]
     Indication: Infection prophylaxis
     Route: 042
     Dates: start: 20250903, end: 20250903
  10. AMOXICILLIN AND CLAVULANATE POTASSIUM TABLET [Concomitant]
     Indication: Infection prophylaxis
     Route: 048
     Dates: start: 20250906, end: 20250909

REACTIONS (3)
  - Febrile infection [Recovering/Resolving]
  - Agranulocytosis [Not Recovered/Not Resolved]
  - Off label use [Unknown]

NARRATIVE: CASE EVENT DATE: 20250828
